FAERS Safety Report 4577310-0 (Version None)
Quarter: 2005Q1

REPORT INFORMATION
  Report Type: 
  Country: None (occurrence: None)
  Receive Date: 20050210
  Receipt Date: 20050127
  Transmission Date: 20050727
  Serious: Yes (Hospitalization)
  Sender: FDA-Public Use
  Company Number: A0543366A

PATIENT
  Age: 38 Year
  Sex: Male

DRUGS (7)
  1. NICORETTE (ORANGE) [Suspect]
     Route: 002
     Dates: start: 20010101, end: 20010101
  2. DIAZEPAM [Concomitant]
     Route: 048
  3. PREVACID [Concomitant]
     Route: 048
  4. HUMIBID [Concomitant]
  5. ZYRTEC-D 12 HOUR [Concomitant]
  6. NASAL SPRAY [Concomitant]
  7. GOODY'S EXTRA STRENGTH HEADACHE POWDER [Concomitant]

REACTIONS (2)
  - ASTHMA LATE ONSET [None]
  - DIABETES MELLITUS NON-INSULIN-DEPENDENT [None]
